FAERS Safety Report 8654123 (Version 7)
Quarter: 2012Q4

REPORT INFORMATION
  Report Type: 
  Country: US (occurrence: US)
  Receive Date: 20120709
  Receipt Date: 20121105
  Transmission Date: 20130627
  Serious: Yes (Other)
  Sender: FDA-Public Use
  Company Number: US-PFIZER INC-2012160805

PATIENT
  Age: 72 Year
  Sex: Female
  Weight: 65.76 kg

DRUGS (7)
  1. CELEBREX [Suspect]
     Indication: ARTHRITIS
     Dosage: 200 mg, 2x/day
     Route: 048
     Dates: end: 201209
  2. CELEBREX [Suspect]
     Indication: OSTEOARTHRITIS
  3. ASPIRIN [Concomitant]
     Dosage: 81 mg, UNK
  4. ASPIRIN [Concomitant]
     Dosage: UNK, 3x/day
  5. CALTRATE WITH VITAMIN D [Concomitant]
     Indication: CALCIUM SUPPLEMENTATION
     Dosage: UNK, 2x/day
  6. VITAMIN D3 [Concomitant]
     Dosage: UNK
  7. PRENATAL VITAMINS [Concomitant]
     Dosage: UNK

REACTIONS (7)
  - Spinal cord disorder [Unknown]
  - Nerve injury [Unknown]
  - Bone cyst [Recovered/Resolved]
  - Cyst [Recovered/Resolved]
  - Abasia [Recovered/Resolved]
  - Neuralgia [Recovered/Resolved]
  - Pain [Recovered/Resolved]
